FAERS Safety Report 9840343 (Version 1)
Quarter: 2014Q1

REPORT INFORMATION
  Report Type: Spontaneous
  Country: US (occurrence: US)
  Receive Date: 20140124
  Receipt Date: 20140124
  Transmission Date: 20141002
  Serious: Yes (Hospitalization)
  Sender: FDA-Public Use
  Company Number: US-JNJFOC-20140107316

PATIENT
  Age: 25 Year
  Sex: Male

DRUGS (5)
  1. INVEGA [Suspect]
     Indication: BIPOLAR I DISORDER
     Route: 048
     Dates: start: 201309
  2. INVEGA [Suspect]
     Indication: BIPOLAR I DISORDER
     Route: 048
     Dates: start: 201309, end: 201309
  3. INVEGA SUSTENNA [Suspect]
     Indication: BIPOLAR I DISORDER
     Route: 030
  4. INVEGA SUSTENNA [Suspect]
     Indication: BIPOLAR I DISORDER
     Route: 030
     Dates: start: 201309, end: 201401
  5. ZYPREXA [Concomitant]
     Route: 065
     Dates: start: 201308

REACTIONS (5)
  - Hallucination, auditory [Recovering/Resolving]
  - Anxiety [Recovering/Resolving]
  - Akathisia [Recovering/Resolving]
  - Dyskinesia [Recovering/Resolving]
  - Drug ineffective [Not Recovered/Not Resolved]
